FAERS Safety Report 5563551-2 (Version None)
Quarter: 2007Q4

REPORT INFORMATION
  Report Type: 
  Country: None (occurrence: None)
  Receive Date: 20071217
  Receipt Date: 20070716
  Transmission Date: 20080405
  Serious: No
  Sender: FDA-Public Use
  Company Number: US-ASTRAZENECA-2007UW16531

PATIENT
  Age: 62 Year
  Sex: Female
  Weight: 53.5 kg

DRUGS (4)
  1. CRESTOR [Suspect]
     Indication: DYSLIPIDAEMIA
     Route: 048
  2. ASPIRIN [Concomitant]
  3. INSULIN [Concomitant]
  4. CALCIUM W/VITAMIN D [Concomitant]

REACTIONS (4)
  - ARTHRALGIA [None]
  - DECREASED APPETITE [None]
  - DYSPEPSIA [None]
  - PAIN IN EXTREMITY [None]
